FAERS Safety Report 9083808 (Version 2)
Quarter: 2017Q1

REPORT INFORMATION
  Report Type: Spontaneous
  Country: US (occurrence: US)
  Receive Date: 20130130
  Receipt Date: 20170105
  Transmission Date: 20170429
  Serious: Yes (Death, Other)
  Sender: FDA-Public Use
  Company Number: US-009507513-1301USA012890

PATIENT
  Age: 73 Year
  Sex: Male

DRUGS (5)
  1. NORVASC [Concomitant]
     Active Substance: AMLODIPINE BESYLATE
  2. ISENTRESS [Suspect]
     Active Substance: RALTEGRAVIR POTASSIUM
     Indication: HIV INFECTION
     Dosage: 400 MG, BID
     Route: 048
     Dates: start: 2011, end: 20161229
  3. TRUVADA [Concomitant]
     Active Substance: EMTRICITABINE\TENOFOVIR DISOPROXIL FUMARATE
  4. EPZICOM [Concomitant]
     Active Substance: ABACAVIR SULFATE\LAMIVUDINE
  5. PREZISTA [Concomitant]
     Active Substance: DARUNAVIR ETHANOLATE

REACTIONS (6)
  - Chemotherapy [Recovered/Resolved]
  - Lymphoma [Unknown]
  - Asthenia [Recovered/Resolved]
  - Death [Fatal]
  - Neoplasm malignant [Recovered/Resolved]
  - Malaise [Unknown]

NARRATIVE: CASE EVENT DATE: 2015
